FAERS Safety Report 5758632-4 (Version None)
Quarter: 2008Q2

REPORT INFORMATION
  Report Type: 
  Country: None (occurrence: None)
  Receive Date: 20080603
  Receipt Date: 20080603
  Transmission Date: 20081010
  Serious: No
  Sender: FDA-Public Use
  Company Number: None

PATIENT
  Sex: Male

DRUGS (1)
  1. ROGAINE [Suspect]

REACTIONS (6)
  - AGGRESSION [None]
  - CRYING [None]
  - DRUG HYPERSENSITIVITY [None]
  - HIRSUTISM [None]
  - PRURITUS [None]
  - SCAB [None]
